FAERS Safety Report 24643058 (Version 2)
Quarter: 2025Q1

REPORT INFORMATION
  Report Type: Spontaneous
  Country: FR (occurrence: FR)
  Receive Date: 20241120
  Receipt Date: 20250107
  Transmission Date: 20250409
  Serious: Yes (Other)
  Sender: PFIZER
  Company Number: FR-PFIZER INC-PV202400148808

PATIENT
  Age: 2 Year
  Sex: Male
  Weight: 13 kg

DRUGS (3)
  1. ZITHROMAX [Suspect]
     Active Substance: AZITHROMYCIN DIHYDRATE
     Indication: Oropharyngeal pain
     Dosage: 20 MG/KG, THREE TIMES A DAY
     Route: 048
     Dates: start: 20240925, end: 20240927
  2. ZITHROMAX [Suspect]
     Active Substance: AZITHROMYCIN DIHYDRATE
     Indication: Ear infection
  3. TIXOCORTOL PIVALATE [Suspect]
     Active Substance: TIXOCORTOL PIVALATE
     Dosage: 1 DF, THREE TIMES A DAY (IN EACH NOSTRIL)
     Route: 045

REACTIONS (6)
  - Fall [Recovered/Resolved]
  - Femur fracture [Recovered/Resolved]
  - Bone pain [Recovered/Resolved]
  - Pain in extremity [Recovered/Resolved]
  - Off label use [Unknown]
  - Off label use [Unknown]

NARRATIVE: CASE EVENT DATE: 20240901
